FAERS Safety Report 8245162-3 (Version None)
Quarter: 2012Q1

REPORT INFORMATION
  Report Type: 
  Country: None (occurrence: None)
  Receive Date: 20120329
  Receipt Date: 20120322
  Transmission Date: 20120608
  Serious: No
  Sender: FDA-Public Use
  Company Number: JP-B.I. PHARMACEUTICALS,INC./RIDGEFIELD-2011-BP-28583NB

PATIENT
  Sex: Male

DRUGS (12)
  1. SYMBICORT [Concomitant]
     Indication: CHRONIC OBSTRUCTIVE PULMONARY DISEASE
     Route: 055
     Dates: start: 20110315, end: 20120203
  2. SPIRIVA [Suspect]
     Indication: CHRONIC OBSTRUCTIVE PULMONARY DISEASE
     Dosage: 5 MCG
     Route: 055
     Dates: start: 20111111
  3. SINGULAIR [Concomitant]
     Dosage: 10 MG
     Route: 048
  4. CLARITIN [Concomitant]
     Dosage: 10 MG
     Route: 048
  5. SEFTAC [Concomitant]
     Dosage: 2 G
     Route: 048
  6. MEDICON [Concomitant]
     Dosage: 270 MG
     Route: 048
  7. QVAR 40 [Concomitant]
     Route: 055
     Dates: start: 20110906
  8. ESTAZOLAM [Concomitant]
     Dosage: 0.5 MG
     Route: 048
  9. CADEMESIN [Concomitant]
     Dosage: 4 MG
     Route: 048
  10. AMLODIPINE [Concomitant]
     Dosage: 30 MG
     Route: 048
  11. MAGNESIUM HYDROXIDE TAB [Concomitant]
     Dosage: 10.8 G
     Route: 048
  12. BROTIZOLAM OD [Concomitant]
     Dosage: 0.25 MG
     Route: 048

REACTIONS (2)
  - OROPHARYNGEAL PAIN [None]
  - PHARYNGEAL ERYTHEMA [None]
